FAERS Safety Report 14376221 (Version 3)
Quarter: 2018Q2

REPORT INFORMATION
  Report Type: Spontaneous
  Country: DK (occurrence: DK)
  Receive Date: 20180111
  Receipt Date: 20180508
  Transmission Date: 20180711
  Serious: Yes (Other)
  Sender: FDA-Public Use
  Company Number: DK-MYLANLABS-2018M1001796

PATIENT
  Sex: Female

DRUGS (2)
  1. LEVETIRACETAM. [Suspect]
     Active Substance: LEVETIRACETAM
     Indication: EPILEPSY
     Dosage: UNK
  2. L-ARGININE                         /00126101/ [Suspect]
     Active Substance: ARGININE
     Indication: EPILEPSY
     Dosage: UNK

REACTIONS (2)
  - Psychotic disorder [Recovered/Resolved]
  - Generalised tonic-clonic seizure [Unknown]
